FAERS Safety Report 6904936-9 (Version None)
Quarter: 2010Q3

REPORT INFORMATION
  Report Type: 
  Country: None (occurrence: None)
  Receive Date: 20100804
  Receipt Date: 20090807
  Transmission Date: 20110219
  Serious: Yes (Other)
  Sender: FDA-Public Use
  Company Number: US-PFIZER INC-2009222111

PATIENT
  Sex: Female
  Weight: 98.883 kg

DRUGS (8)
  1. LYRICA [Suspect]
     Indication: PAIN
     Dosage: 50 MG, 3X/DAY
     Dates: start: 20090401, end: 20090531
  2. LANTUS [Concomitant]
     Dosage: UNK
  3. HUMALOG [Concomitant]
     Dosage: UNK
  4. BENICAR [Concomitant]
     Dosage: 40 MG, 1X/DAY
  5. SIMVASTATIN [Concomitant]
     Dosage: 20 MG, 1X/DAY
  6. PREVACID [Concomitant]
     Dosage: 30 MG, 1X/DAY
  7. REQUIP [Concomitant]
     Dosage: 2 MG, 1X/DAY
  8. HYDROCHLOROTHIAZIDE [Concomitant]
     Dosage: 25 MG, 1X/DAY

REACTIONS (4)
  - DYSARTHRIA [None]
  - DYSPHAGIA [None]
  - OEDEMA MOUTH [None]
  - SWOLLEN TONGUE [None]
